FAERS Safety Report 5747405-4 (Version None)
Quarter: 2008Q2

REPORT INFORMATION
  Report Type: 
  Country: None (occurrence: None)
  Receive Date: 20080523
  Receipt Date: 20080516
  Transmission Date: 20081010
  Serious: Yes (Life-Threatening, Hospitalization)
  Sender: FDA-Public Use
  Company Number: US-KINGPHARMUSA00001-K200800453

PATIENT

DRUGS (15)
  1. ALTACE [Suspect]
     Dosage: 1.25 MG, QD
     Route: 048
     Dates: start: 20060413, end: 20060425
  2. OFLOCET  /00731801/ [Suspect]
     Route: 048
     Dates: start: 20060413, end: 20060424
  3. LASILIX   /00032601/ [Suspect]
     Dosage: 40 MG, QD
     Route: 048
     Dates: start: 20060409, end: 20060414
  4. FUROSEMIDE SODIUM [Suspect]
     Indication: DIURETIC THERAPY
     Dosage: FLUCTUATING DOSAGE, UNK
     Route: 042
     Dates: start: 20060414, end: 20060425
  5. ESIDRIX [Suspect]
     Dosage: 25 MG, QD
     Route: 048
     Dates: start: 20060419, end: 20060425
  6. ZOCOR [Suspect]
     Dosage: 20 MG, QD
     Route: 048
     Dates: start: 20060406, end: 20060424
  7. NEO-MERCAZOLE TAB [Suspect]
     Dosage: 2.5 MG, QD
     Route: 048
     Dates: start: 20060409, end: 20060424
  8. XATRAL /00975301/ [Suspect]
     Dosage: 10 MG, QD
     Route: 048
     Dates: start: 20060406, end: 20060424
  9. DIFFU K [Suspect]
     Dosage: 600 MG, QD
     Route: 048
     Dates: start: 20060422, end: 20060425
  10. IPRATROPIUM BROMIDE [Suspect]
     Dates: end: 20060425
  11. ALDACTONE [Suspect]
     Dosage: 25 MG, QD
     Route: 048
     Dates: start: 20060414, end: 20060425
  12. ISOPTIN [Suspect]
     Dosage: 240 MG, QD
     Route: 048
     Dates: start: 20060416, end: 20060425
  13. PROSCAR [Suspect]
     Dosage: 5 MG, QD
     Route: 048
     Dates: start: 20060418, end: 20060424
  14. BRICANYL-DURILES [Suspect]
     Dosage: 500 MCG, QD
     Dates: start: 20060419, end: 20060425
  15. TARDYFERON /00023503/ [Suspect]
     Dosage: 80 MG, QD
     Dates: start: 20060422, end: 20060425

REACTIONS (8)
  - ASTERIXIS [None]
  - ENCEPHALOPATHY [None]
  - HYPERCAPNIA [None]
  - INTERSTITIAL LUNG DISEASE [None]
  - MENTAL DISORDER [None]
  - METABOLIC ACIDOSIS [None]
  - METABOLIC ALKALOSIS [None]
  - SOMNOLENCE [None]
